FAERS Safety Report 23531657 (Version 1)
Quarter: 2024Q1

REPORT INFORMATION
  Report Type: Spontaneous
  Country: US (occurrence: US)
  Receive Date: 20240216
  Receipt Date: 20240216
  Transmission Date: 20240409
  Serious: No
  Sender: FDA-Public Use
  Company Number: US-TORRENT-00013411

PATIENT
  Sex: Male

DRUGS (1)
  1. NYSTATIN [Suspect]
     Active Substance: NYSTATIN
     Indication: Tinea cruris
     Dosage: UNKNOWN
     Route: 065

REACTIONS (1)
  - Drug effective for unapproved indication [Unknown]
